FAERS Safety Report 10285218 (Version 5)
Quarter: 2014Q4

REPORT INFORMATION
  Report Type: Spontaneous
  Country: NL (occurrence: NL)
  Receive Date: 20140708
  Receipt Date: 20141107
  Transmission Date: 20150528
  Serious: Yes (Other)
  Sender: FDA-Public Use
  Company Number: NL-SA-2014SA080074

PATIENT
  Age: 39 Year
  Sex: Female

DRUGS (4)
  1. AUBAGIO [Suspect]
     Active Substance: TERIFLUNOMIDE
     Indication: RELAPSING-REMITTING MULTIPLE SCLEROSIS
     Route: 048
     Dates: start: 20140328, end: 20140523
  2. VITAMIN D [Concomitant]
     Active Substance: CHOLECALCIFEROL
     Dates: start: 20140326
  3. COLECALCIFEROL [Concomitant]
     Active Substance: CHOLECALCIFEROL
     Dosage: 800 IE
     Route: 048
  4. ESTROGEN NOS/INTESTINAL VACCINE, POLYVALENT/PROGESTOGEN [Concomitant]

REACTIONS (10)
  - Mental disorder [Recovered/Resolved]
  - Alopecia [Recovering/Resolving]
  - Fatigue [Recovering/Resolving]
  - Listless [Recovered/Resolved]
  - Nausea [Unknown]
  - Peritonsillar abscess [Recovered/Resolved]
  - Diarrhoea [Recovering/Resolving]
  - Hepatic enzyme increased [Unknown]
  - Pollakiuria [Recovering/Resolving]
  - Hyperaesthesia [Recovering/Resolving]

NARRATIVE: CASE EVENT DATE: 2014
